FAERS Safety Report 12863871 (Version 6)
Quarter: 2017Q1

REPORT INFORMATION
  Report Type: Report from Study
  Country: None (occurrence: RO)
  Receive Date: 20161019
  Receipt Date: 20170321
  Transmission Date: 20170428
  Serious: Yes (Death, Hospitalization)
  Sender: FDA-Public Use
  Company Number: RO-ABBVIE-16P-135-1757485-00

PATIENT
  Age: 78 Year
  Sex: Male
  Weight: 68 kg

DRUGS (13)
  1. EXVIERA [Suspect]
     Active Substance: DASABUVIR
     Indication: HEPATITIS C
     Route: 048
     Dates: start: 20160818, end: 20161109
  2. PROTECARDIN [Concomitant]
     Indication: ISCHAEMIC CARDIOMYOPATHY
     Route: 048
  3. RIBAVIRIN. [Concomitant]
     Active Substance: RIBAVIRIN
     Indication: HEPATIC CIRRHOSIS
  4. PROPRANOLOL [Concomitant]
     Active Substance: PROPRANOLOL HYDROCHLORIDE
     Indication: ISCHAEMIC CARDIOMYOPATHY
     Route: 048
  5. PENTOXI RETARD [Interacting]
     Active Substance: PENTOXIFYLLINE
     Indication: ISCHAEMIC CARDIOMYOPATHY
     Route: 048
  6. VIEKIRAX [Suspect]
     Active Substance: OMBITASVIR\PARITAPREVIR\RITONAVIR
     Indication: HEPATITIS C
     Route: 048
     Dates: start: 20160818, end: 20161109
  7. EXVIERA [Suspect]
     Active Substance: DASABUVIR
     Indication: HEPATIC CIRRHOSIS
  8. VIEKIRAX [Suspect]
     Active Substance: OMBITASVIR\PARITAPREVIR\RITONAVIR
     Indication: HEPATIC CIRRHOSIS
  9. PROTECARDIN [Concomitant]
     Indication: ISCHAEMIC CARDIOMYOPATHY
     Route: 048
  10. NITROMINT [Concomitant]
     Indication: ISCHAEMIC CARDIOMYOPATHY
     Route: 048
  11. RIBAVIRIN. [Concomitant]
     Active Substance: RIBAVIRIN
     Indication: HEPATITIS C
     Route: 048
     Dates: start: 20160818, end: 20161109
  12. ENALAPRIL [Concomitant]
     Active Substance: ENALAPRIL
     Indication: ISCHAEMIC CARDIOMYOPATHY
     Route: 048
  13. LAGOSA [Concomitant]
     Indication: LIVER DISORDER
     Route: 048

REACTIONS (12)
  - Rectal adenocarcinoma [Fatal]
  - Decreased appetite [Not Recovered/Not Resolved]
  - Rectal neoplasm [Fatal]
  - Hypokinesia [Not Recovered/Not Resolved]
  - Chills [Not Recovered/Not Resolved]
  - Asthenia [Not Recovered/Not Resolved]
  - Abdominal pain [Not Recovered/Not Resolved]
  - Urinary tract infection [Recovered/Resolved]
  - Bone pain [Not Recovered/Not Resolved]
  - Cardiac arrest [Fatal]
  - Malaise [Recovering/Resolving]
  - Nausea [Not Recovered/Not Resolved]

NARRATIVE: CASE EVENT DATE: 20160927
